FAERS Safety Report 7491525-3 (Version None)
Quarter: 2011Q2

REPORT INFORMATION
  Report Type: 
  Country: None (occurrence: None)
  Receive Date: 20110519
  Receipt Date: 20110516
  Transmission Date: 20111010
  Serious: Yes (Death, Other)
  Sender: FDA-Public Use
  Company Number: PHHY2010CA62688

PATIENT
  Sex: Male

DRUGS (7)
  1. AMIODARONE HCL [Concomitant]
  2. ALTACE [Concomitant]
  3. LASIX [Concomitant]
  4. SANDOSTATIN LAR [Suspect]
     Dosage: 30 MG, EVERY 4 WEEKS
     Route: 030
  5. METOPROLOL TARTRATE [Concomitant]
  6. LIPIDIL [Concomitant]
  7. SANDOSTATIN LAR [Suspect]
     Indication: CARCINOID TUMOUR
     Dosage: 30 MG, QMO
     Route: 030
     Dates: start: 20081201

REACTIONS (14)
  - WEIGHT DECREASED [None]
  - TYPE 2 DIABETES MELLITUS [None]
  - SEPSIS [None]
  - LOSS OF CONSCIOUSNESS [None]
  - BLOOD PRESSURE INCREASED [None]
  - HYPOTENSION [None]
  - JAUNDICE [None]
  - NEOPLASM PROGRESSION [None]
  - FLUID RETENTION [None]
  - DEPRESSED LEVEL OF CONSCIOUSNESS [None]
  - ABDOMINAL PAIN [None]
  - HYPERGLYCAEMIA [None]
  - BLOOD GLUCOSE DECREASED [None]
  - PYREXIA [None]
